FAERS Safety Report 15990816 (Version 1)
Quarter: 2019Q1

REPORT INFORMATION
  Report Type: Spontaneous
  Country: US (occurrence: US)
  Receive Date: 20190125
  Receipt Date: 20190125
  Transmission Date: 20190418
  Serious: No
  Sender: FDA-Public Use
  Company Number: None

PATIENT
  Age: 66 Year
  Sex: Female

DRUGS (2)
  1. CELEBREX HYDROCHLOROTHIAZIDE [Concomitant]
  2. FORTEO [Suspect]
     Active Substance: TERIPARATIDE
     Route: 058
     Dates: start: 20190102

REACTIONS (2)
  - Musculoskeletal stiffness [None]
  - Pain in extremity [None]

NARRATIVE: CASE EVENT DATE: 20190111
